FAERS Safety Report 8771469 (Version 2)
Quarter: 2012Q4

REPORT INFORMATION
  Report Type: 
  Country: GB (occurrence: GB)
  Receive Date: 20120905
  Receipt Date: 20120927
  Transmission Date: 20130627
  Serious: Yes (Disabling)
  Sender: FDA-Public Use
  Company Number: GB-WATSON-2012-15552

PATIENT
  Age: 32 Year
  Sex: Male

DRUGS (4)
  1. MIRTAZAPINE (UNKNOWN) [Suspect]
     Indication: INSOMNIA
     Dosage: 15mg to 30mg
     Route: 048
  2. MIRTAZAPINE (UNKNOWN) [Suspect]
     Indication: ANXIETY
  3. MIRTAZAPINE (UNKNOWN) [Suspect]
     Indication: DEPRESSION
  4. DIAZEPAM [Concomitant]
     Indication: PRODUCT USED FOR UNKNOWN INDICATION
     Route: 065

REACTIONS (4)
  - Suicidal ideation [Recovered/Resolved]
  - Violence-related symptom [Recovered/Resolved]
  - Emotional distress [Recovered/Resolved]
  - Insomnia [Recovered/Resolved]
